FAERS Safety Report 25328338 (Version 1)
Quarter: 2025Q2

REPORT INFORMATION
  Report Type: Report from Study
  Country: US (occurrence: US)
  Receive Date: 20250518
  Receipt Date: 20250518
  Transmission Date: 20250717
  Serious: Yes (Other)
  Sender: ABBVIE
  Company Number: US-ABBVIE-6278364

PATIENT
  Age: 88 Year
  Sex: Female
  Weight: 53 kg

DRUGS (2)
  1. RESTASIS [Suspect]
     Active Substance: CYCLOSPORINE
     Indication: Dry eye
     Dosage: DOSE: 1 DROP?FORM STRENGTH: 1 DRAM
     Route: 047
     Dates: start: 2022
  2. TRAMADOL [Concomitant]
     Active Substance: TRAMADOL
     Indication: Product used for unknown indication

REACTIONS (6)
  - Ligament sprain [Recovered/Resolved]
  - Fall [Recovered/Resolved]
  - Thoracic vertebral fracture [Recovered/Resolved]
  - Fractured sacrum [Recovering/Resolving]
  - Fall [Recovered/Resolved]
  - Lumbar vertebral fracture [Recovered/Resolved]

NARRATIVE: CASE EVENT DATE: 20250101
